FAERS Safety Report 25066219 (Version 1)
Quarter: 2025Q1

REPORT INFORMATION
  Report Type: Spontaneous
  Country: US (occurrence: US)
  Receive Date: 20250312
  Receipt Date: 20250312
  Transmission Date: 20250408
  Serious: Yes (Hospitalization, Other)
  Sender: Norvium Bioscience
  Company Number: US-Norvium Bioscience LLC-079940

PATIENT
  Age: 55 Year
  Sex: Female
  Weight: 0 kg

DRUGS (2)
  1. IBUPROFEN [Suspect]
     Active Substance: IBUPROFEN
     Indication: Headache
  2. IBUPROFEN [Suspect]
     Active Substance: IBUPROFEN
     Indication: Ear pain

REACTIONS (1)
  - Meningitis aseptic [Recovered/Resolved]
